FAERS Safety Report 5826292-X (Version None)
Quarter: 2008Q3

REPORT INFORMATION
  Report Type: 
  Country: None (occurrence: None)
  Receive Date: 20080729
  Receipt Date: 20080717
  Transmission Date: 20090109
  Serious: Yes (Other)
  Sender: FDA-Public Use
  Company Number: US-PFIZER INC-2008060010

PATIENT
  Age: 42 Year
  Sex: Male

DRUGS (2)
  1. GEODON [Suspect]
     Indication: DEPRESSION
  2. CELEXA [Concomitant]

REACTIONS (3)
  - ANAPHYLACTIC REACTION [None]
  - MANIA [None]
  - SOMNOLENCE [None]
